FAERS Safety Report 9240102 (Version 1)
Quarter: 2013Q2

REPORT INFORMATION
  Report Type: Spontaneous
  Country: US (occurrence: None)
  Receive Date: 20130417
  Receipt Date: 20130417
  Transmission Date: 20140414
  Serious: Yes (Hospitalization)
  Sender: FDA-Public Use
  Company Number: US-ALSI-201300029

PATIENT
  Age: 53 Year
  Sex: Female

DRUGS (2)
  1. OXYGEN [Suspect]
     Indication: OXYGEN SUPPLEMENTATION
     Dosage: ONCE A MINUTE RESPIRATORY.
  2. NITROUS OXIDE [Concomitant]

REACTIONS (4)
  - Thermal burn [None]
  - Skin graft [None]
  - Procedural site reaction [None]
  - Accident [None]
